FAERS Safety Report 8963741 (Version 2)
Quarter: 2013Q1

REPORT INFORMATION
  Report Type: Spontaneous
  Country: US (occurrence: US)
  Receive Date: 20121214
  Receipt Date: 20130121
  Transmission Date: 20140127
  Serious: Yes (Other)
  Sender: FDA-Public Use
  Company Number: US-JNJFOC-20121204088

PATIENT
  Age: 46 Year
  Sex: Female
  Weight: 54.43 kg

DRUGS (2)
  1. BENADRYL ALLERGY DYE-FREE [Suspect]
     Indication: SLEEP DISORDER THERAPY
     Dosage: 3 PILLS IN 25 HOURS
     Route: 048
     Dates: start: 20121203, end: 20121204
  2. BENADRYL ALLERGY DYE-FREE [Suspect]
     Indication: SLEEP DISORDER THERAPY
     Route: 048

REACTIONS (5)
  - Hallucination [Recovered/Resolved]
  - Visual impairment [Recovered/Resolved]
  - Psychomotor hyperactivity [Recovered/Resolved]
  - Off label use [Unknown]
  - Physical product label issue [Unknown]
